FAERS Safety Report 9106666 (Version 3)
Quarter: 2013Q3

REPORT INFORMATION
  Report Type: Report from Study
  Country: CA (occurrence: CA)
  Receive Date: 20130221
  Receipt Date: 20130708
  Transmission Date: 20140515
  Serious: Yes (Death, Other)
  Sender: FDA-Public Use
  Company Number: PHHY2012CA088193

PATIENT
  Sex: Male

DRUGS (1)
  1. SANDOSTATIN LAR [Suspect]
     Indication: THYROID CANCER
     Dosage: 30 MG EVERY 4 WEEKS
     Route: 030
     Dates: start: 20120719, end: 20130628

REACTIONS (13)
  - Death [Fatal]
  - Intussusception [Unknown]
  - Neoplasm [Unknown]
  - Neck mass [Unknown]
  - Gastrointestinal disorder [Unknown]
  - Gastrooesophageal reflux disease [Recovering/Resolving]
  - Vomiting [Unknown]
  - Dysphagia [Unknown]
  - Abdominal pain [Unknown]
  - Abdominal discomfort [Unknown]
  - Liver disorder [Unknown]
  - Pain [Unknown]
  - Nausea [Unknown]
